FAERS Safety Report 24567534 (Version 2)
Quarter: 2025Q3

REPORT INFORMATION
  Report Type: Report from Study
  Country: ZA (occurrence: ZA)
  Receive Date: 20241031
  Receipt Date: 20250808
  Transmission Date: 20251021
  Serious: Yes (Hospitalization)
  Sender: ABBVIE
  Company Number: ZA-ABBOTT-2024A-1389041

PATIENT
  Age: 62 Year
  Sex: Male

DRUGS (14)
  1. CREON [Suspect]
     Active Substance: PANCRELIPASE AMYLASE\PANCRELIPASE LIPASE\PANCRELIPASE PROTEASE
     Indication: Pancreatic failure
     Dosage: 300 MG TAKE ONE CAPSULE TWICE A DAY, 25000
     Route: 048
  2. Otrivin menthol [Concomitant]
     Indication: Product used for unknown indication
     Dosage: 1 MG ONE SPRAY INTO BOTH NOSTRILS THREE TIMESA DAY
     Route: 045
  3. FLUCONAZOLE [Concomitant]
     Active Substance: FLUCONAZOLE
     Indication: Product used for unknown indication
     Route: 048
  4. CITALOPRAM HYDROBROMIDE [Concomitant]
     Active Substance: CITALOPRAM HYDROBROMIDE
     Indication: Psychiatric care
     Dosage: 20 MG TAKE ONE TABLET ONCE DAILY
     Route: 048
  5. ACETYLCYSTEINE [Concomitant]
     Active Substance: ACETYLCYSTEINE
     Indication: Product used for unknown indication
     Route: 048
  6. FLUENZ TETRA [Concomitant]
     Active Substance: INFLUENZA VIRUS VACCINE
     Indication: Product used for unknown indication
     Route: 048
  7. MELATONIN [Concomitant]
     Active Substance: MELATONIN
     Indication: Sleep disorder
     Dosage: 2 MG TAKE ONE TABLET AT NIGHT
     Route: 048
  8. DIFLUCORTOLONE VALERATE\ISOCONAZOLE NITRATE [Concomitant]
     Active Substance: DIFLUCORTOLONE VALERATE\ISOCONAZOLE NITRATE
     Indication: Product used for unknown indication
     Dosage: APPLY TO THE AFFECTED AREAS TWICE A DAY
     Route: 061
  9. Andolex c [Concomitant]
     Indication: Product used for unknown indication
     Route: 048
  10. Vicks vaporub lemon [Concomitant]
     Indication: Product used for unknown indication
     Route: 048
  11. Aspen Azithromycin [Concomitant]
     Indication: Product used for unknown indication
     Dosage: 500 MG TAKE ONE TABLET ONCE DAILY, NF
     Route: 048
  12. ACETYLCYSTEINE [Concomitant]
     Active Substance: ACETYLCYSTEINE
     Indication: Product used for unknown indication
     Dosage: 600 MG TAKE ONE TABLET DISSOLVED IN WATER BEFORE USE DAILY?ACC  600
     Route: 048
  13. Probiflora adult [Concomitant]
     Indication: Product used for unknown indication
     Dosage: TAKE TWO CAPSULES AT NIGHT
     Route: 048
  14. Helixia cough prospan [Concomitant]
     Indication: Product used for unknown indication
     Dosage: 7 MG 10ML THREE TIMES A DAY
     Route: 048

REACTIONS (2)
  - Renal transplant [Unknown]
  - Renal disorder [Recovering/Resolving]
